FAERS Safety Report 8900015 (Version 1)
Quarter: 2012Q4

REPORT INFORMATION
  Report Type: 
  Country: US (occurrence: US)
  Receive Date: 20121108
  Receipt Date: 20121108
  Transmission Date: 20130627
  Serious: No
  Sender: FDA-Public Use
  Company Number: US-AMGEN-USASP2012012343

PATIENT
  Age: 52 Year
  Sex: Female
  Weight: 30.39 kg

DRUGS (8)
  1. ENBREL [Suspect]
     Indication: PRODUCT USED FOR UNKNOWN INDICATION
     Dosage: 25 mg, 2 times/wk
     Route: 058
  2. DICLOFENAC [Concomitant]
     Dosage: 75 mg, UNK
  3. METHOTREXATE [Concomitant]
     Dosage: 2.5 mg, UNK
  4. ATENOLOL [Concomitant]
     Dosage: 25 mg, UNK
  5. PRILOSEC                           /00661201/ [Concomitant]
     Dosage: 10 mg, UNK
  6. ZANTAC [Concomitant]
     Dosage: 150 mg, UNK
  7. FOLIC ACID [Concomitant]
     Dosage: UNK
  8. METHOTREXATE [Concomitant]
     Dosage: 25 ml, UNK

REACTIONS (5)
  - Gastrooesophageal reflux disease [Unknown]
  - Anxiety [Unknown]
  - Dyspnoea [Unknown]
  - Dysphonia [Unknown]
  - Dysphagia [Unknown]
